FAERS Safety Report 9560621 (Version 1)
Quarter: 2013Q3

REPORT INFORMATION
  Report Type: Spontaneous
  Country: US (occurrence: None)
  Receive Date: 20130909
  Receipt Date: 20130909
  Transmission Date: 20140515
  Serious: Yes (Other)
  Sender: FDA-Public Use
  Company Number: 376059

PATIENT
  Age: 70 Year
  Sex: Female

DRUGS (10)
  1. VICTOZA (LIRAGLUTIDE) SOLUTION FOR INJECTION, 6MG/ML [Suspect]
     Indication: TYPE 2 DIABETES MELLITUS
     Dosage: 1.8 MG, QD, SUBCUTANEOUS
     Route: 058
     Dates: start: 20120119, end: 20130322
  2. LANTUS (INSULIN GLARGINE) [Concomitant]
  3. SIMVASTATIN (SIMVASTATIN) [Concomitant]
  4. OCUVITE /01053801/ (ASCORBIC ACID, RETINOL, TOCOPHEROL) [Concomitant]
  5. HYDROCHLOROTHIAZIDE (HYDROCHLOROTHIAZIDE) [Concomitant]
  6. ASPIRIN (ACETYLSALICYLATE ACID) [Concomitant]
  7. LISINOPRIL (LISINOPRIL) [Concomitant]
  8. GEMFIBROZIL (GEMFIBROZIL) [Concomitant]
  9. LEXAPRO (ESCITALOPRAM OXALATE) [Concomitant]
  10. FISH OIL (FISH OIL) [Concomitant]

REACTIONS (1)
  - Pancreatitis [None]
